FAERS Safety Report 23405412 (Version 1)
Quarter: 2024Q1

REPORT INFORMATION
  Report Type: Spontaneous
  Country: US (occurrence: None)
  Receive Date: 20240112
  Receipt Date: 20240112
  Transmission Date: 20240409
  Serious: Yes (Death)
  Sender: FDA-Public Use
  Company Number: None

PATIENT
  Age: 43 Year
  Sex: Female

DRUGS (1)
  1. ENOXAPARIN [Suspect]
     Active Substance: ENOXAPARIN

REACTIONS (5)
  - Hypertensive crisis [None]
  - Intracranial aneurysm [None]
  - Subarachnoid haemorrhage [None]
  - Therapy interrupted [None]
  - Brain death [None]

NARRATIVE: CASE EVENT DATE: 20231108
